FAERS Safety Report 9189286 (Version 1)
Quarter: 2013Q1

REPORT INFORMATION
  Report Type: Spontaneous
  Country: US (occurrence: None)
  Receive Date: 20130321
  Receipt Date: 20130321
  Transmission Date: 20140127
  Serious: No
  Sender: FDA-Public Use
  Company Number: None

PATIENT
  Age: 55 Year
  Sex: Male

DRUGS (1)
  1. STIVARGA 40MG BAYER [Suspect]
     Dosage: 160MG DAILY PO FOR 21 DAYS
     Route: 048
     Dates: start: 20130219, end: 20130315

REACTIONS (1)
  - Skin exfoliation [None]
